FAERS Safety Report 18646117 (Version 1)
Quarter: 2020Q4

REPORT INFORMATION
  Report Type: Spontaneous
  Country: GB (occurrence: GB)
  Receive Date: 20201222
  Receipt Date: 20201222
  Transmission Date: 20210114
  Serious: Yes (Other)
  Sender: FDA-Public Use
  Company Number: GB-LUPIN PHARMACEUTICALS INC.-2020-06026

PATIENT
  Age: 3 Year
  Sex: Male

DRUGS (2)
  1. MICONAZOLE. [Suspect]
     Active Substance: MICONAZOLE
     Indication: MUCOCUTANEOUS CANDIDIASIS
     Dosage: UNK (GEL)
     Route: 048
  2. NYSTATIN. [Suspect]
     Active Substance: NYSTATIN
     Indication: MUCOCUTANEOUS CANDIDIASIS
     Dosage: UNK (SUSPENSION)
     Route: 048

REACTIONS (1)
  - Drug ineffective [Unknown]
